FAERS Safety Report 10347313 (Version 1)
Quarter: 2014Q3

REPORT INFORMATION
  Report Type: Spontaneous
  Country: US (occurrence: None)
  Receive Date: 20140725
  Receipt Date: 20140725
  Transmission Date: 20150326
  Serious: Yes (Death)
  Sender: FDA-Public Use
  Company Number: 2014US00848

PATIENT

DRUGS (2)
  1. IRINOTECAN (IRINOTECAN) INJECTION, 180 MG/M2 [Suspect]
     Active Substance: IRINOTECAN
     Indication: METASTASES TO CENTRAL NERVOUS SYSTEM
     Dosage: 125 MG/M2, DAYS 1 AND 8 OF EACH 21 DAY CYCLE, INTRAVENOUS
     Route: 042
  2. INIPARIB [Suspect]
     Active Substance: INIPARIB
     Indication: METASTASES TO CENTRAL NERVOUS SYSTEM
     Dosage: 5.6 MG/KG, DAYS 1, 4, 8, 11 OF EACH 21 DAY CYCLE, INTRAVENOUS
     Route: 042

REACTIONS (1)
  - Respiratory tract infection [None]
